FAERS Safety Report 16956682 (Version 1)
Quarter: 2019Q4

REPORT INFORMATION
  Report Type: Spontaneous
  Country: US (occurrence: US)
  Receive Date: 20190905
  Receipt Date: 20190905
  Transmission Date: 20200122
  Serious: No
  Sender: FDA-Public Use
  Company Number: None

PATIENT
  Age: 65 Year
  Sex: Female

DRUGS (1)
  1. COPAXONE [Suspect]
     Active Substance: GLATIRAMER ACETATE
     Dosage: ?          OTHER DOSE:1;?
     Route: 058
     Dates: start: 20190905

REACTIONS (1)
  - Insomnia [None]

NARRATIVE: CASE EVENT DATE: 20190905
